FAERS Safety Report 5091815-8 (Version None)
Quarter: 2006Q3

REPORT INFORMATION
  Report Type: 
  Country: None (occurrence: None)
  Receive Date: 20060829
  Receipt Date: 20060614
  Transmission Date: 20061208
  Serious: Yes (Hospitalization, Other)
  Sender: FDA-Public Use
  Company Number: US-BRISTOL-MYERS SQUIBB COMPANY-13412556

PATIENT
  Age: 55 Year
  Sex: Male
  Weight: 73 kg

DRUGS (11)
  1. ERBITUX [Suspect]
     Indication: COLORECTAL CANCER
     Route: 042
     Dates: start: 20060101, end: 20060101
  2. TYLENOL [Concomitant]
     Indication: PREMEDICATION
     Route: 048
     Dates: start: 20060101, end: 20060101
  3. DECADRON [Concomitant]
     Indication: PREMEDICATION
     Route: 042
     Dates: start: 20060101, end: 20060101
  4. BENADRYL [Concomitant]
     Indication: PREMEDICATION
     Route: 042
     Dates: start: 20060101, end: 20060101
  5. ZOFRAN [Concomitant]
     Indication: PREMEDICATION
     Route: 042
     Dates: start: 20060101, end: 20060101
  6. DILANTIN [Concomitant]
  7. NEXIUM [Concomitant]
  8. METFORMIN HCL [Concomitant]
  9. NIASPAN [Concomitant]
  10. OXYCONTIN [Concomitant]
  11. OXYIR [Concomitant]

REACTIONS (2)
  - COLORECTAL CANCER [None]
  - DERMATITIS ACNEIFORM [None]
